FAERS Safety Report 5118991-2 (Version None)
Quarter: 2006Q3

REPORT INFORMATION
  Report Type: 
  Country: None (occurrence: None)
  Receive Date: 20060927
  Receipt Date: 20060914
  Transmission Date: 20061208
  Serious: Yes (Hospitalization)
  Sender: FDA-Public Use
  Company Number: AZASE200600300

PATIENT
  Age: 64 Year
  Sex: Female
  Weight: 93 kg

DRUGS (11)
  1. AZACITIDINE (AZACITIDINE) [Suspect]
     Indication: MYELODYSPLASTIC SYNDROME
     Dosage: 75 MG/M2 (DAILY X 7 DAYS), SUBCUTANEOUS
     Route: 058
     Dates: start: 20060711, end: 20060717
  2. ZOPIKLON (ZOPICLONE) [Concomitant]
  3. WARFARIN SODIUM [Concomitant]
  4. FUROSEMIDE [Concomitant]
  5. POTASSIUM CHLORIDE [Concomitant]
  6. FELODIPIN (FELODIPINE) [Concomitant]
  7. KARBAMAZEPIN (CARBAMAZEPINE) [Concomitant]
  8. SERTRALINE [Concomitant]
  9. FOLIC ACID [Concomitant]
  10. LANSOPRAZOLE [Concomitant]
  11. KODEIN (CODEINE) [Concomitant]

REACTIONS (2)
  - PULMONARY EMBOLISM [None]
  - VERTIGO [None]
